FAERS Safety Report 17732356 (Version 3)
Quarter: 2020Q3

REPORT INFORMATION
  Report Type: Spontaneous
  Country: US (occurrence: US)
  Receive Date: 20200501
  Receipt Date: 20200915
  Transmission Date: 20201102
  Serious: Yes (Disabling)
  Sender: FDA-Public Use
  Company Number: US-PFIZER INC-2020078155

PATIENT
  Age: 62 Year
  Sex: Male

DRUGS (2)
  1. PREDNISONE. [Concomitant]
     Active Substance: PREDNISONE
     Dosage: UNK
  2. XELJANZ XR [Suspect]
     Active Substance: TOFACITINIB CITRATE
     Indication: PSORIATIC ARTHROPATHY
     Dosage: 11 MG, 1X/DAY
     Route: 048
     Dates: start: 20200214

REACTIONS (12)
  - Swelling [Unknown]
  - Chondrocalcinosis [Unknown]
  - Arthralgia [Unknown]
  - Pain in extremity [Not Recovered/Not Resolved]
  - Product dose omission issue [Unknown]
  - Pain [Recovered/Resolved]
  - Condition aggravated [Recovered/Resolved]
  - Discomfort [Unknown]
  - Phlebitis [Recovering/Resolving]
  - Skin disorder [Unknown]
  - Gait inability [Recovered/Resolved]
  - Nail pitting [Not Recovered/Not Resolved]

NARRATIVE: CASE EVENT DATE: 2020
